FAERS Safety Report 10420201 (Version 1)
Quarter: 2014Q3

REPORT INFORMATION
  Report Type: Report from Study
  Country: US (occurrence: None)
  Receive Date: 20140804
  Receipt Date: 20140804
  Transmission Date: 20150326
  Serious: Yes (Hospitalization)
  Sender: FDA-Public Use
  Company Number: 2012US006332

PATIENT
  Age: 74 Year
  Sex: Female
  Weight: 123 kg

DRUGS (14)
  1. GLASSIA [Suspect]
     Active Substance: .ALPHA.1-PROTEINASE INHIBITOR HUMAN
     Indication: ALPHA-1 ANTI-TRYPSIN DEFICIENCY
     Route: 042
     Dates: start: 20110120
  2. HUMOLOG (HUMOLOG) [Concomitant]
  3. REMERON [Concomitant]
     Active Substance: MIRTAZAPINE
  4. LANTUS [Concomitant]
     Active Substance: INSULIN GLARGINE
  5. PREVACID [Concomitant]
     Active Substance: LANSOPRAZOLE
  6. VITAMIN D / 00107901 (ERGOCALCIFEROL) [Concomitant]
     Active Substance: ERGOCALCIFEROL
  7. ALBUTEROL /00139501/ (SALBUTAMOL) [Concomitant]
     Active Substance: ALBUTEROL
  8. SYNTHROID [Concomitant]
     Active Substance: LEVOTHYROXINE SODIUM
  9. NEURONTIN [Concomitant]
     Active Substance: GABAPENTIN
  10. NORVASC [Concomitant]
     Active Substance: AMLODIPINE BESYLATE
  11. LEVALO (LEVALO) [Concomitant]
  12. MELOXICAM (MELOXICAM) [Concomitant]
     Active Substance: MELOXICAM
  13. SPIRIVA [Concomitant]
     Active Substance: TIOTROPIUM BROMIDE MONOHYDRATE
  14. PROAIR HFA [Concomitant]
     Active Substance: ALBUTEROL SULFATE

REACTIONS (15)
  - Local swelling [None]
  - Asthenia [None]
  - Intestinal obstruction [None]
  - Bronchiectasis [None]
  - Peripheral swelling [None]
  - Nausea [None]
  - Abdominal hernia [None]
  - Drug hypersensitivity [None]
  - Vein disorder [None]
  - Blood pressure decreased [None]
  - Dyspnoea [None]
  - Hypersensitivity [None]
  - Poor venous access [None]
  - Bronchitis [None]
  - Wheezing [None]

NARRATIVE: CASE EVENT DATE: 20121101
